FAERS Safety Report 12916998 (Version 2)
Quarter: 2017Q1

REPORT INFORMATION
  Report Type: Spontaneous
  Country: GB (occurrence: GB)
  Receive Date: 20161107
  Receipt Date: 20170203
  Transmission Date: 20170428
  Serious: Yes (Other)
  Sender: FDA-Public Use
  Company Number: GB-GUERBET LLC-1059306

PATIENT
  Age: 48 Year
  Sex: Female
  Weight: 72.6 kg

DRUGS (3)
  1. ABATACEPT [Concomitant]
     Active Substance: ABATACEPT
  2. SULFASALAZINE. [Concomitant]
     Active Substance: SULFASALAZINE
  3. DOTAREM [Suspect]
     Active Substance: GADOTERATE MEGLUMINE
     Indication: NUCLEAR MAGNETIC RESONANCE IMAGING
     Route: 040
     Dates: start: 20161025, end: 20161025

REACTIONS (12)
  - Ear swelling [Recovered/Resolved]
  - Erythema [Recovered/Resolved]
  - Paraesthesia [Recovered/Resolved]
  - Chest discomfort [Recovered/Resolved]
  - Tension headache [Recovered/Resolved]
  - Pruritus [Recovered/Resolved]
  - Eye swelling [Recovered/Resolved]
  - Feeling hot [Recovered/Resolved]
  - Paraesthesia ear [Recovered/Resolved]
  - Urticaria [Recovered/Resolved]
  - Headache [Recovered/Resolved]
  - Pallor [Recovered/Resolved]

NARRATIVE: CASE EVENT DATE: 20161025
